FAERS Safety Report 19458846 (Version 1)
Quarter: 2021Q2

REPORT INFORMATION
  Report Type: Spontaneous
  Country: US (occurrence: US)
  Receive Date: 20210624
  Receipt Date: 20210624
  Transmission Date: 20210717
  Serious: Yes (Hospitalization)
  Sender: FDA-Public Use
  Company Number: None

PATIENT
  Age: 41 Year
  Sex: Male

DRUGS (14)
  1. IRON [Concomitant]
     Active Substance: IRON
  2. TAMSULOSIN [Concomitant]
     Active Substance: TAMSULOSIN
  3. TERAZOSIN [Concomitant]
     Active Substance: TERAZOSIN HYDROCHLORIDE
  4. CAPECITABINE 150 MG TAB [Suspect]
     Active Substance: CAPECITABINE
     Indication: COLON CANCER
     Route: 048
     Dates: start: 20191122
  5. FOLIC ACID. [Concomitant]
     Active Substance: FOLIC ACID
  6. LORAZEPAM. [Concomitant]
     Active Substance: LORAZEPAM
  7. SERTRALINE [Concomitant]
     Active Substance: SERTRALINE HYDROCHLORIDE
  8. CAPECITABINE 500 MG TAB [Suspect]
     Active Substance: CAPECITABINE
     Indication: COLON CANCER
     Route: 048
     Dates: start: 20191122
  9. GABAPENTIN. [Concomitant]
     Active Substance: GABAPENTIN
  10. VITAMIN C [Concomitant]
     Active Substance: ASCORBIC ACID
  11. AMITRIPTYLINE [Suspect]
     Active Substance: AMITRIPTYLINE
  12. ATENOLOL. [Suspect]
     Active Substance: ATENOLOL
  13. DOCUSATE SOD CAP [Concomitant]
  14. OMEPRAZOLE. [Concomitant]
     Active Substance: OMEPRAZOLE

REACTIONS (3)
  - Biopsy lung [None]
  - Seizure [None]
  - Ill-defined disorder [None]

NARRATIVE: CASE EVENT DATE: 20210617
